FAERS Safety Report 5057088-7 (Version None)
Quarter: 2006Q2

REPORT INFORMATION
  Report Type: 
  Country: None (occurrence: None)
  Receive Date: 20060622
  Receipt Date: 20060428
  Transmission Date: 20061013
  Serious: Yes (Hospitalization)
  Sender: FDA-Public Use
  Company Number: US-JNJFOC-20060500467

PATIENT
  Sex: Female
  Weight: 54.4316 kg

DRUGS (1)
  1. DURAGESIC-100 [Suspect]
     Indication: PAIN
     Dosage: 25 UG/HR 1 IN 72 HOUR TRANSDERMAL
     Route: 062

REACTIONS (1)
  - ROAD TRAFFIC ACCIDENT [None]
